FAERS Safety Report 25213026 (Version 1)
Quarter: 2025Q2

REPORT INFORMATION
  Report Type: Spontaneous
  Country: DK (occurrence: DK)
  Receive Date: 20250418
  Receipt Date: 20250418
  Transmission Date: 20250717
  Serious: Yes (Life-Threatening, Hospitalization, Other)
  Sender: Kenvue
  Company Number: DK-SANDOZ-SDZ2025DK020184

PATIENT

DRUGS (4)
  1. IBUPROFEN [Suspect]
     Active Substance: IBUPROFEN
     Indication: Suicide attempt
     Route: 065
  2. RIFAMPIN [Interacting]
     Active Substance: RIFAMPIN
     Indication: Suicide attempt
     Route: 065
  3. FUSIDIC ACID [Interacting]
     Active Substance: FUSIDIC ACID
     Indication: Suicide attempt
     Route: 065
  4. ITRACONAZOLE [Interacting]
     Active Substance: ITRACONAZOLE
     Indication: Suicide attempt
     Route: 065

REACTIONS (4)
  - Cardiogenic shock [Recovered/Resolved]
  - Poisoning [Unknown]
  - Overdose [Unknown]
  - Drug interaction [Unknown]
